FAERS Safety Report 8475136-9 (Version None)
Quarter: 2012Q2

REPORT INFORMATION
  Report Type: 
  Country: None (occurrence: None)
  Receive Date: 20120628
  Receipt Date: 20120626
  Transmission Date: 20120825
  Serious: Yes (Other)
  Sender: FDA-Public Use
  Company Number: US-PFIZER INC-2005099266

PATIENT
  Sex: Female
  Weight: 44.91 kg

DRUGS (6)
  1. ALLEGRA-D 12 HOUR [Concomitant]
     Dosage: 60 MG, 2X/DAY
     Route: 048
  2. SUDAFED 12 HOUR [Concomitant]
     Dosage: UNK
     Route: 048
  3. ZOLOFT [Suspect]
     Indication: DEPRESSION
  4. ZOLOFT [Suspect]
     Indication: POST-TRAUMATIC STRESS DISORDER
     Dosage: 100 MG DAILY
     Route: 048
     Dates: start: 20031201
  5. IBUPROFEN [Concomitant]
     Dosage: UNK
     Route: 048
  6. FLONASE [Concomitant]
     Dosage: UNK
     Route: 045

REACTIONS (3)
  - NEOPLASM MALIGNANT [None]
  - LIBIDO DECREASED [None]
  - THYROID DISORDER [None]
